FAERS Safety Report 7104597-2 (Version None)
Quarter: 2010Q4

REPORT INFORMATION
  Report Type: 
  Country: None (occurrence: None)
  Receive Date: 20101108
  Receipt Date: 20101026
  Transmission Date: 20110411
  Serious: Yes (Death, Disabling)
  Sender: FDA-Public Use
  Company Number: 741169

PATIENT
  Age: 23 Year
  Sex: Male

DRUGS (3)
  1. FLUDARABINE PHOSPHATE [Suspect]
     Indication: STEM CELL TRANSPLANT
     Dosage: 30 MG/M2 MILLIGRAM(S) /SQ, METER
  2. CYCLOPHOSPHAMIDE [Suspect]
     Indication: STEM CELL TRANSPLANT
     Dosage: 1.2 G/M
  3. (RITUXIMAB) [Concomitant]

REACTIONS (18)
  - AUTOIMMUNE DISORDER [None]
  - BLINDNESS [None]
  - BRAIN HERNIATION [None]
  - CONFUSIONAL STATE [None]
  - DEMYELINATION [None]
  - DEPRESSED LEVEL OF CONSCIOUSNESS [None]
  - ENCEPHALOPATHY [None]
  - GLIOSIS [None]
  - HYDROCEPHALUS [None]
  - MYELOPATHY [None]
  - NEUROLOGICAL DECOMPENSATION [None]
  - NEUROTOXICITY [None]
  - OCULAR TOXICITY [None]
  - OPTIC ATROPHY [None]
  - POTENTIATING DRUG INTERACTION [None]
  - RETINAL HAEMORRHAGE [None]
  - RETINAL OEDEMA [None]
  - RETINOPATHY [None]
